FAERS Safety Report 6264716-7 (Version None)
Quarter: 2009Q3

REPORT INFORMATION
  Report Type: 
  Country: None (occurrence: None)
  Receive Date: 20090710
  Receipt Date: 20090703
  Transmission Date: 20100115
  Serious: Yes (Other)
  Sender: FDA-Public Use
  Company Number: MA-SANOFI-SYNTHELABO-A01200903619

PATIENT
  Age: 40 Year
  Sex: Female

DRUGS (5)
  1. CHLOROQUINE [Suspect]
     Indication: SYSTEMIC LUPUS ERYTHEMATOSUS
     Dosage: 200 MG
     Route: 065
     Dates: start: 20020101, end: 20020101
  2. CHLOROQUINE [Suspect]
     Dosage: UNKNOWN UNK
     Route: 065
     Dates: start: 20040101, end: 20040101
  3. CHLOROQUINE [Suspect]
     Dosage: 200 MG
     Route: 065
     Dates: start: 20060101, end: 20060101
  4. PREDNISONE TAB [Concomitant]
     Indication: SYSTEMIC LUPUS ERYTHEMATOSUS
     Dosage: 1 MG/KG
     Route: 048
     Dates: start: 20020101
  5. PREDNISONE TAB [Concomitant]
     Dosage: UNK
     Route: 065
     Dates: start: 20060101, end: 20060101

REACTIONS (2)
  - ACUTE FEBRILE NEUTROPHILIC DERMATOSIS [None]
  - HYPOCHROMIC ANAEMIA [None]
